FAERS Safety Report 9077005 (Version 1)
Quarter: 2013Q1

REPORT INFORMATION
  Report Type: Report from Study
  Country: US (occurrence: US)
  Receive Date: 20130129
  Receipt Date: 20130129
  Transmission Date: 20140127
  Serious: No
  Sender: FDA-Public Use
  Company Number: US-ABBOTT-12P-163-0946325-00

PATIENT
  Age: 60 Year
  Sex: Male

DRUGS (7)
  1. HUMIRA 40 MG/0.8 ML PEN [Suspect]
     Indication: CROHN^S DISEASE
     Dates: start: 200805
  2. DIPHEN/ATROPINE [Concomitant]
     Indication: SHORT-BOWEL SYNDROME
     Dosage: 4 OR 5 PILLS DAILY
  3. CHOLESTYRAMINE-5 GM PACKET [Concomitant]
     Indication: PRODUCT USED FOR UNKNOWN INDICATION
     Dosage: TAKE 1/6 OF PACKET FOR PATIENTS WITH CROHN^S WHO HAVE HAD GALLBLADDER REMOVAL
  4. IRON [Concomitant]
     Indication: ANAEMIA
  5. CALCIUM [Concomitant]
     Indication: PRODUCT USED FOR UNKNOWN INDICATION
     Dosage: DAILY
  6. VIT D [Concomitant]
     Indication: PRODUCT USED FOR UNKNOWN INDICATION
     Dosage: DAILY
  7. MAGNESIUM [Concomitant]
     Indication: PRODUCT USED FOR UNKNOWN INDICATION
     Dosage: DAILY

REACTIONS (3)
  - Claustrophobia [Unknown]
  - Restlessness [Not Recovered/Not Resolved]
  - Irritability [Unknown]
